FAERS Safety Report 11431210 (Version 2)
Quarter: 2015Q3

REPORT INFORMATION
  Report Type: Spontaneous
  Country: US (occurrence: US)
  Receive Date: 20150828
  Receipt Date: 20150928
  Transmission Date: 20151125
  Serious: Yes (Other)
  Sender: FDA-Public Use
  Company Number: US-ROCHE-ITM201506IM017128

PATIENT
  Sex: Male
  Weight: 63.56 kg

DRUGS (2)
  1. ESBRIET [Suspect]
     Active Substance: PIRFENIDONE
     Indication: IDIOPATHIC PULMONARY FIBROSIS
     Dosage: 3 CAPSULES TID
     Route: 048
     Dates: start: 20150211
  2. ESBRIET [Suspect]
     Active Substance: PIRFENIDONE
     Dosage: 3 CAPSULE TID (DRUG SHIPPED ON 26/AUG/2015)
     Route: 048

REACTIONS (11)
  - Hip fracture [Unknown]
  - Somnolence [Unknown]
  - Eating disorder [Unknown]
  - Dizziness [Unknown]
  - Lethargy [Unknown]
  - Decreased appetite [Unknown]
  - Weight decreased [Unknown]
  - Cough [Recovering/Resolving]
  - Nausea [Unknown]
  - Fatigue [Unknown]
  - Fall [Unknown]
